FAERS Safety Report 25347599 (Version 3)
Quarter: 2025Q3

REPORT INFORMATION
  Report Type: Spontaneous
  Country: EU (occurrence: EU)
  Receive Date: 20250522
  Receipt Date: 20250926
  Transmission Date: 20251021
  Serious: Yes (Death, Other)
  Sender: DAIICHI
  Company Number: EU-DAIICHI SANKYO, INC.-DS-2025-138414-BE

PATIENT
  Age: 38 Year
  Sex: Female
  Weight: 100 kg

DRUGS (5)
  1. ENHERTU [Suspect]
     Active Substance: FAM-TRASTUZUMAB DERUXTECAN-NXKI
     Indication: Adenocarcinoma gastric
     Dosage: UNK, ONCE EVERY 3 WK
     Route: 065
     Dates: start: 20241028, end: 20241028
  2. ALLOPURINOL [Concomitant]
     Active Substance: ALLOPURINOL
     Indication: Gout
     Route: 065
  3. RIVAROXABAN [Concomitant]
     Active Substance: RIVAROXABAN
     Indication: Pulmonary embolism
     Route: 065
  4. PANTOPRAZOLE SODIUM [Concomitant]
     Active Substance: PANTOPRAZOLE SODIUM
     Indication: Gastritis
     Route: 065
  5. VENLAFAXINE HYDROCHLORIDE [Concomitant]
     Active Substance: VENLAFAXINE HYDROCHLORIDE
     Indication: Depression
     Route: 065

REACTIONS (1)
  - Interstitial lung disease [Fatal]

NARRATIVE: CASE EVENT DATE: 20250301
